FAERS Safety Report 4307693-8 (Version None)
Quarter: 2004Q1

REPORT INFORMATION
  Report Type: 
  Country: None (occurrence: None)
  Receive Date: 20040226
  Receipt Date: 20040211
  Transmission Date: 20041129
  Serious: Yes (Other)
  Sender: FDA-Public Use
  Company Number: 42-2004-0001

PATIENT
  Age: 81 Year
  Sex: Male

DRUGS (17)
  1. PHOSLO GELCAPS [Suspect]
     Indication: HYPERPHOSPHATAEMIA
     Dosage: 667MG ONCE PO
     Route: 048
     Dates: start: 20040101, end: 20040101
  2. HEPARIN [Concomitant]
  3. TYLENOL (CAPLET) [Concomitant]
  4. ZEMPLAR [Concomitant]
  5. FERRLECIT [Concomitant]
  6. ACTIVASE [Concomitant]
  7. EPOGEN [Concomitant]
  8. ATARAX [Concomitant]
  9. CLONIDINE HCL [Concomitant]
  10. NEPHROCAPS [Concomitant]
  11. COUMADIN [Concomitant]
  12. LOPRESSOR [Concomitant]
  13. TUMS [Concomitant]
  14. DOCUSATE SODIUM [Concomitant]
  15. BENADRYL [Concomitant]
  16. NIFEDIPINE [Concomitant]
  17. VICODIN [Concomitant]

REACTIONS (3)
  - FACE OEDEMA [None]
  - OEDEMA PERIPHERAL [None]
  - URTICARIA [None]
